FAERS Safety Report 6027297-9 (Version None)
Quarter: 2008Q4

REPORT INFORMATION
  Report Type: 
  Country: None (occurrence: None)
  Receive Date: 20081222
  Receipt Date: 20080926
  Transmission Date: 20090506
  Serious: No
  Sender: FDA-Public Use
  Company Number: US-WYE-H06171108

PATIENT
  Age: 73 Year
  Sex: Male

DRUGS (6)
  1. PRISTIQ [Suspect]
     Indication: DEPRESSION
     Dosage: 50 MG 1X PER 1 DAY, ORAL
     Route: 048
     Dates: start: 20080801
  2. DDAVP [Suspect]
  3. EXELON [Concomitant]
  4. CARBIDOPA (CARBIDOPA) [Concomitant]
  5. LEVODOPA (LEVODOPA) [Concomitant]
  6. COUMADIN [Concomitant]

REACTIONS (2)
  - HYPERTENSION [None]
  - NAUSEA [None]
